FAERS Safety Report 16297303 (Version 1)
Quarter: 2019Q2

REPORT INFORMATION
  Report Type: Spontaneous
  Country: DE (occurrence: DE)
  Receive Date: 20190510
  Receipt Date: 20190510
  Transmission Date: 20190711
  Serious: Yes (Hospitalization)
  Sender: FDA-Public Use
  Company Number: PHHY2019DE104884

PATIENT
  Age: 7 Year
  Sex: Female
  Weight: 47 kg

DRUGS (5)
  1. BUCCOLAM [Concomitant]
     Active Substance: MIDAZOLAM HYDROCHLORIDE
     Indication: SEIZURE
     Dosage: 10 MG, QD (ANWENDUNG BEI BEDARF)
     Route: 002
  2. BRIVIACT [Suspect]
     Active Substance: BRIVARACETAM
     Indication: PARTIAL SEIZURES
     Dosage: 100 MG, QD
     Route: 048
     Dates: start: 201812, end: 20190107
  3. MYCOPHENOLATE MOFETIL. [Suspect]
     Active Substance: MYCOPHENOLATE MOFETIL
     Indication: LIMBIC ENCEPHALITIS
     Dosage: UNK (1-0-1.5)
     Route: 048
     Dates: start: 20181115, end: 20190107
  4. PREDNISOLON [Concomitant]
     Active Substance: PREDNISOLONE
     Indication: LIMBIC ENCEPHALITIS
     Dosage: 7.5 MG, QD
     Route: 048
     Dates: start: 20150709
  5. LAMOTRIGIN [Concomitant]
     Active Substance: LAMOTRIGINE
     Indication: PARTIAL SEIZURES
     Dosage: UNK (1.5-0-2)
     Route: 048

REACTIONS (1)
  - Seizure [Recovered/Resolved]

NARRATIVE: CASE EVENT DATE: 20190107
